FAERS Safety Report 14365688 (Version 1)
Quarter: 2018Q1

REPORT INFORMATION
  Report Type: Spontaneous
  Country: US (occurrence: US)
  Receive Date: 20180109
  Receipt Date: 20180109
  Transmission Date: 20180509
  Serious: Yes (Hospitalization)
  Sender: FDA-Public Use
  Company Number: US-STRIDES ARCOLAB LIMITED-2018SP000043

PATIENT

DRUGS (4)
  1. VANCOMYCIN [Suspect]
     Active Substance: VANCOMYCIN
     Indication: ABSCESS LIMB
     Dosage: UNKNOWN
     Route: 042
  2. TOBRAMYCIN. [Suspect]
     Active Substance: TOBRAMYCIN
     Indication: ABSCESS LIMB
     Dosage: 3.6 G, UNK
     Route: 061
  3. VANCOMYCIN [Suspect]
     Active Substance: VANCOMYCIN
     Dosage: PLACEMENT OF BONE CEMENT WITH 3 GM
     Route: 061
  4. CEFEPIME [Concomitant]
     Active Substance: CEFEPIME HYDROCHLORIDE
     Indication: ABSCESS LIMB
     Dosage: UNKNOWN
     Route: 065

REACTIONS (6)
  - Tubulointerstitial nephritis [Unknown]
  - Flank pain [Unknown]
  - Oliguria [Recovered/Resolved]
  - Renal tubular necrosis [Unknown]
  - Acute kidney injury [Recovered/Resolved]
  - Haematuria [Unknown]
